FAERS Safety Report 9449299 (Version 6)
Quarter: 2016Q4

REPORT INFORMATION
  Report Type: Report from Study
  Country: GR (occurrence: GR)
  Receive Date: 20130808
  Receipt Date: 20161202
  Transmission Date: 20170207
  Serious: Yes (Hospitalization)
  Sender: FDA-Public Use
  Company Number: GR-PFIZER INC-2013226471

PATIENT
  Age: 61 Year
  Sex: Male

DRUGS (10)
  1. PENTAMIDINE [Concomitant]
     Active Substance: PENTAMIDINE
     Indication: CHRONIC LYMPHOCYTIC LEUKAEMIA
     Dosage: UNK
     Dates: start: 20130718
  2. FLUDARABINE [Suspect]
     Active Substance: FLUDARABINE PHOSPHATE
     Indication: CHRONIC LYMPHOCYTIC LEUKAEMIA
     Dosage: 60 MG , 3 DAY, EVERY 28 DAY
     Route: 042
     Dates: start: 20130720
  3. ARACYTIN [Suspect]
     Active Substance: CYTARABINE
     Indication: CHRONIC LYMPHOCYTIC LEUKAEMIA
     Dosage: 1000 MG, 3 DAY, EVERY 28 DAY
     Route: 042
     Dates: start: 20130710
  4. OMEPRAZOLE. [Concomitant]
     Active Substance: OMEPRAZOLE
     Dosage: 20 MG, 1X/DAY
     Route: 048
     Dates: start: 20130720
  5. OXALIPLATIN. [Suspect]
     Active Substance: OXALIPLATIN
     Indication: CHRONIC LYMPHOCYTIC LEUKAEMIA
     Dosage: 60 MG, 4 DAY, EVERY 28 DAY
     Route: 042
     Dates: start: 20130719
  6. ALLOPURINOL. [Concomitant]
     Active Substance: ALLOPURINOL
     Indication: CHRONIC LYMPHOCYTIC LEUKAEMIA
     Dosage: 300 MG, 1X/DAY
     Route: 048
     Dates: start: 20130422
  7. RITUXIMAB [Suspect]
     Active Substance: RITUXIMAB
     Indication: CHRONIC LYMPHOCYTIC LEUKAEMIA
     Dosage: 1000 MG EVERY 28 DAYS
     Route: 042
     Dates: start: 20130422
  8. ACYCLOVIR. [Concomitant]
     Active Substance: ACYCLOVIR
     Dosage: 400 MG, 2X/DAY
     Route: 048
     Dates: start: 20130422
  9. EPOETIN ZETA [Concomitant]
     Active Substance: ERYTHROPOIETIN
     Dosage: 40000 UNIT NOT REPORTED,1 IN 1 WK
     Route: 058
     Dates: start: 20130718
  10. PIPERACILLIN SODIUM/TAZOBACTAM [Concomitant]
     Dosage: UNK

REACTIONS (5)
  - Neutropenia [Recovered/Resolved]
  - Thrombocytopenia [Recovered/Resolved]
  - Blood creatinine increased [Recovered/Resolved]
  - Haemoglobin decreased [Not Recovered/Not Resolved]
  - Pyrexia [Recovered/Resolved]

NARRATIVE: CASE EVENT DATE: 20130722
